FAERS Safety Report 7761302-4 (Version None)
Quarter: 2011Q3

REPORT INFORMATION
  Report Type: 
  Country: None (occurrence: None)
  Receive Date: 20110920
  Receipt Date: 20110914
  Transmission Date: 20111222
  Serious: Yes (Other)
  Sender: FDA-Public Use
  Company Number: US-PURDUE-USA-2011-0074608

PATIENT
  Sex: Male

DRUGS (2)
  1. OXYCONTIN [Suspect]
     Indication: PRODUCT USED FOR UNKNOWN INDICATION
     Dosage: 40 MG, TID
     Route: 048
  2. OXYCONTIN [Suspect]
     Dosage: 20 MG, TID
     Route: 048

REACTIONS (3)
  - FALL [None]
  - JOINT INSTABILITY [None]
  - RIB FRACTURE [None]
